FAERS Safety Report 23933792 (Version 4)
Quarter: 2024Q2

REPORT INFORMATION
  Report Type: Spontaneous
  Country: CA (occurrence: CA)
  Receive Date: 20240603
  Receipt Date: 20240625
  Transmission Date: 20240716
  Serious: Yes (Hospitalization, Other)
  Sender: FDA-Public Use
  Company Number: CA-PFIZER INC-202400047586

PATIENT
  Age: 81 Year
  Sex: Female

DRUGS (2)
  1. CIBINQO [Suspect]
     Active Substance: ABROCITINIB
     Indication: Dermatitis atopic
     Dosage: 100 MG, 1X/DAY
     Route: 048
     Dates: start: 20240202, end: 202405
  2. CIBINQO [Suspect]
     Active Substance: ABROCITINIB
     Dosage: 100 MG, 1X/DAY
     Route: 048
     Dates: start: 2024, end: 202406

REACTIONS (8)
  - Haematochezia [Recovered/Resolved]
  - Pyrexia [Unknown]
  - Gastrointestinal bacterial infection [Not Recovered/Not Resolved]
  - Haemoglobin decreased [Not Recovered/Not Resolved]
  - Blood pressure increased [Not Recovered/Not Resolved]
  - Diarrhoea [Not Recovered/Not Resolved]
  - Eating disorder [Not Recovered/Not Resolved]
  - Decreased appetite [Not Recovered/Not Resolved]

NARRATIVE: CASE EVENT DATE: 20240101
